FAERS Safety Report 9992890 (Version 2)
Quarter: 2014Q2

REPORT INFORMATION
  Report Type: Spontaneous
  Country: NO (occurrence: NO)
  Receive Date: 20140310
  Receipt Date: 20140408
  Transmission Date: 20141212
  Serious: Yes (Disabling)
  Sender: FDA-Public Use
  Company Number: NO-BRISTOL-MYERS SQUIBB COMPANY-20351474

PATIENT
  Age: 53 Year
  Sex: Male

DRUGS (5)
  1. FORXIGA [Suspect]
     Indication: TYPE 2 DIABETES MELLITUS
     Dosage: INITIALLY REDUCED TO 10 MG THREE DAYS A WEEK AND WITHDRAW LATER
     Route: 048
     Dates: start: 20130423
  2. SIMVASTATIN [Concomitant]
     Route: 048
  3. EUCREAS [Concomitant]
     Route: 048
  4. BISOPROLOL [Concomitant]
     Route: 048
  5. NEXIUM [Concomitant]
     Route: 048

REACTIONS (2)
  - Sarcopenia [Not Recovered/Not Resolved]
  - Weight decreased [Unknown]
